FAERS Safety Report 18934941 (Version 5)
Quarter: 2021Q3

REPORT INFORMATION
  Report Type: Spontaneous
  Country: US (occurrence: US)
  Receive Date: 20210224
  Receipt Date: 20210827
  Transmission Date: 20211014
  Serious: No
  Sender: FDA-Public Use
  Company Number: US-LUPIN PHARMACEUTICALS INC.-2021-02053

PATIENT
  Sex: Male

DRUGS (2)
  1. ALBUTEROL SULFATE INHALATION AEROSOL [Suspect]
     Active Substance: ALBUTEROL SULFATE
     Indication: BRONCHOSPASM
     Dosage: UNK
     Dates: start: 202102
  2. IPRATROPIUM [Concomitant]
     Active Substance: IPRATROPIUM
     Indication: PRODUCT USED FOR UNKNOWN INDICATION
     Dosage: UNK
     Route: 065

REACTIONS (2)
  - Wrong technique in product usage process [Recovered/Resolved]
  - Dyspnoea [Not Recovered/Not Resolved]
